FAERS Safety Report 9063627 (Version 1)
Quarter: 2013Q1

REPORT INFORMATION
  Report Type: Report from Study
  Country: US (occurrence: US)
  Receive Date: 20130131
  Receipt Date: 20130131
  Transmission Date: 20140127
  Serious: No
  Sender: FDA-Public Use
  Company Number: US-ABBOTT-12P-163-0998401-00

PATIENT
  Age: 62 Year
  Sex: Male

DRUGS (4)
  1. HUMIRA [Suspect]
     Indication: PSORIATIC ARTHROPATHY
     Route: 058
     Dates: start: 201011, end: 201111
  2. HUMIRA [Suspect]
     Dates: start: 201210
  3. DIOVAN [Concomitant]
     Indication: HYPERTENSION
     Dosage: AT BEDTIME
  4. FLUOXETINE [Concomitant]
     Indication: DEPRESSION
     Dosage: 10MG DAILY

REACTIONS (6)
  - Drug dose omission [Not Recovered/Not Resolved]
  - Arthralgia [Unknown]
  - Psoriasis [Unknown]
  - Joint swelling [Unknown]
  - Pain in extremity [Unknown]
  - Injection site pain [Unknown]
